FAERS Safety Report 4947590-8 (Version None)
Quarter: 2006Q1

REPORT INFORMATION
  Report Type: 
  Country: None (occurrence: None)
  Receive Date: 20060314
  Receipt Date: 20060303
  Transmission Date: 20060701
  Serious: Yes (Death)
  Sender: FDA-Public Use
  Company Number: 060306-0000196

PATIENT
  Age: 20 Year

DRUGS (3)
  1. METHAMPHETAMINE HYDROCHLORIDE [Suspect]
  2. PHENCYCLIDINE (PHENCYCLIDINE) [Suspect]
     Dosage: INH
     Route: 055
  3. COCAINE (COCAINE) [Suspect]
     Dosage: INH
     Route: 055

REACTIONS (3)
  - ALCOHOL USE [None]
  - CARDIO-RESPIRATORY ARREST [None]
  - COMPLETED SUICIDE [None]
